FAERS Safety Report 9563734 (Version 1)
Quarter: 2013Q3

REPORT INFORMATION
  Report Type: Spontaneous
  Country: GB (occurrence: None)
  Receive Date: 20130926
  Receipt Date: 20130926
  Transmission Date: 20140515
  Serious: Yes (Other)
  Sender: FDA-Public Use
  Company Number: GB-DEXPHARM-20130644

PATIENT
  Age: 56 Year
  Sex: Female

DRUGS (6)
  1. OMEPRAZOLE [Suspect]
     Dates: start: 20130829
  2. BECLOMETASONE [Concomitant]
  3. BUPROPION [Concomitant]
  4. CETIRIZINE [Concomitant]
  5. FEMOSTON [Concomitant]
  6. RANITIDINE [Concomitant]

REACTIONS (3)
  - Gastrointestinal sounds abnormal [None]
  - Insomnia [None]
  - Poor quality sleep [None]
